FAERS Safety Report 10198804 (Version 1)
Quarter: 2014Q2

REPORT INFORMATION
  Report Type: Spontaneous
  Country: US (occurrence: None)
  Receive Date: 20140523
  Receipt Date: 20140523
  Transmission Date: 20141212
  Serious: No
  Sender: FDA-Public Use
  Company Number: None

PATIENT
  Age: 59 Year
  Sex: Female
  Weight: 90.72 kg

DRUGS (1)
  1. DULOXETINE HCL DR 60 MG TEVA [Suspect]
     Indication: DEPRESSION
     Dosage: ONE CAPSULE, TWICE DAILY, TAKEN BY MOUTH
     Route: 048
     Dates: start: 20140517, end: 20140521

REACTIONS (7)
  - Malaise [None]
  - Nausea [None]
  - Hyperhidrosis [None]
  - Dizziness [None]
  - Product physical issue [None]
  - Product substitution issue [None]
  - Gastric disorder [None]
